FAERS Safety Report 7765113-5 (Version None)
Quarter: 2011Q3

REPORT INFORMATION
  Report Type: 
  Country: None (occurrence: None)
  Receive Date: 20110921
  Receipt Date: 20110913
  Transmission Date: 20111222
  Serious: Yes (Hospitalization)
  Sender: FDA-Public Use
  Company Number: JP-ROCHE-802862

PATIENT
  Age: 38 Year
  Sex: Female

DRUGS (2)
  1. ACTEMRA [Suspect]
     Route: 041
     Dates: start: 20110101, end: 20110901
  2. ACTEMRA [Suspect]
     Indication: SCLERODERMA
     Route: 041
     Dates: start: 20110701

REACTIONS (2)
  - GENERALISED OEDEMA [None]
  - MALAISE [None]
